FAERS Safety Report 21212737 (Version 2)
Quarter: 2022Q3

REPORT INFORMATION
  Report Type: Spontaneous
  Country: US (occurrence: US)
  Receive Date: 20220815
  Receipt Date: 20220818
  Transmission Date: 20221026
  Serious: Yes (Other)
  Sender: FDA-Public Use
  Company Number: US-MLMSERVICE-20220802-3708754-2

PATIENT
  Age: 26 Year
  Sex: Female

DRUGS (2)
  1. LORAZEPAM [Suspect]
     Active Substance: LORAZEPAM
     Indication: Catatonia
     Dosage: 2 MG, 4X/DAY
  2. LORAZEPAM [Suspect]
     Active Substance: LORAZEPAM
     Dosage: INCREASED DOSE

REACTIONS (1)
  - Respiratory depression [Unknown]
